FAERS Safety Report 18204838 (Version 1)
Quarter: 2020Q3

REPORT INFORMATION
  Report Type: Spontaneous
  Country: DE (occurrence: DE)
  Receive Date: 20200827
  Receipt Date: 20200827
  Transmission Date: 20201103
  Serious: Yes (Death, Hospitalization, Other)
  Sender: FDA-Public Use
  Company Number: NVSC2020DE234832

PATIENT
  Age: 69 Year
  Sex: Male
  Weight: 66 kg

DRUGS (10)
  1. DEXAMETHASONE. [Suspect]
     Active Substance: DEXAMETHASONE
     Indication: PLASMA CELL MYELOMA
     Dosage: 40 MG
     Route: 065
     Dates: start: 20140506, end: 20140520
  2. POMALIDOMIDE [Suspect]
     Active Substance: POMALIDOMIDE
     Dosage: 3 MG
     Route: 048
     Dates: start: 20140719, end: 20140730
  3. PREDNISOLONE SODIUM SUCCINATE [Concomitant]
     Active Substance: PREDNISOLONE SODIUM SUCCINATE
     Indication: PROPHYLAXIS
     Dosage: 25 MG
     Route: 041
     Dates: start: 20140509
  4. DEXAMETHASONE. [Suspect]
     Active Substance: DEXAMETHASONE
     Dosage: 40 MG (13.5 GRAM)
     Route: 065
     Dates: start: 20140719, end: 20140809
  5. POMALIDOMIDE [Suspect]
     Active Substance: POMALIDOMIDE
     Indication: PLASMA CELL MYELOMA
     Dosage: UNK
     Route: 048
     Dates: end: 20140825
  6. CANDESARTAN. [Concomitant]
     Active Substance: CANDESARTAN
     Indication: HYPERTENSION
     Dosage: 4 MG, QD (DAILY DOSE: 8 MG MILLIGRAM(S) EVERY DAY)
     Route: 048
     Dates: start: 201307
  7. PANTOZOL [Concomitant]
     Active Substance: PANTOPRAZOLE SODIUM
     Indication: PRODUCT USED FOR UNKNOWN INDICATION
     Dosage: 20 MG, QD (DAILY DOSE: 20 MG MILLIGRAM(S) EVERY DAY)
     Route: 048
     Dates: start: 2006
  8. POMALIDOMIDE [Suspect]
     Active Substance: POMALIDOMIDE
     Dosage: 4 MG
     Route: 048
     Dates: start: 20140505, end: 20140519
  9. METOPROLOL. [Concomitant]
     Active Substance: METOPROLOL
     Indication: HYPERTENSION
     Dosage: 100 MG, QD (DAILY DOSE: 100 MG MILLIGRAM(S) EVERY DAY)
     Route: 048
     Dates: start: 201208
  10. AMLODIPIN [Concomitant]
     Active Substance: AMLODIPINE BESYLATE
     Indication: HYPERTENSION
     Dosage: 5 MG, QD (DAILY DOSE: 5 MG MILLIGRAM(S) EVERY DAY)
     Route: 048
     Dates: start: 201407

REACTIONS (4)
  - Plasma cell myeloma [Fatal]
  - Haemophilus sepsis [Recovered/Resolved]
  - Thrombocytopenia [Not Recovered/Not Resolved]
  - Thrombocytopenia [Recovered/Resolved]

NARRATIVE: CASE EVENT DATE: 20140519
